FAERS Safety Report 8484850-0 (Version None)
Quarter: 2012Q3

REPORT INFORMATION
  Report Type: 
  Country: None (occurrence: None)
  Receive Date: 20120703
  Receipt Date: 20120625
  Transmission Date: 20120928
  Serious: Yes (Hospitalization)
  Sender: FDA-Public Use
  Company Number: JP-JNJFOC-20120601139

PATIENT
  Sex: Male
  Weight: 63 kg

DRUGS (11)
  1. MICONAZOLE [Suspect]
     Indication: LARYNGITIS FUNGAL
     Dosage: 2%
     Route: 049
     Dates: start: 20120510, end: 20120519
  2. WARFARIN SODIUM [Interacting]
     Route: 048
  3. LOXONIN [Suspect]
     Route: 048
     Dates: start: 20120515, end: 20120521
  4. ROCEPHIN [Suspect]
     Indication: LARYNGITIS
     Route: 042
     Dates: start: 20120510, end: 20120515
  5. SELBEX [Suspect]
     Indication: PROPHYLAXIS AGAINST GASTROINTESTINAL ULCER
     Route: 048
     Dates: start: 20120510, end: 20120514
  6. SELBEX [Suspect]
     Route: 048
     Dates: start: 20120515, end: 20120521
  7. WARFARIN SODIUM [Interacting]
     Indication: PRODUCT USED FOR UNKNOWN INDICATION
     Route: 048
     Dates: start: 20120604
  8. MICONAZOLE [Suspect]
     Route: 049
  9. LOXONIN [Suspect]
     Indication: ANALGESIC THERAPY
     Route: 048
     Dates: start: 20120510, end: 20120514
  10. GARENOXACIN MESYLATE [Suspect]
     Indication: PRODUCT USED FOR UNKNOWN INDICATION
     Route: 048
     Dates: start: 20120515, end: 20120521
  11. RABEPRAZOLE SODIUM [Suspect]
     Indication: PROPHYLAXIS AGAINST GASTROINTESTINAL ULCER
     Route: 048
     Dates: start: 20120511

REACTIONS (5)
  - DRUG INTERACTION [None]
  - EPISTAXIS [None]
  - INTERNATIONAL NORMALISED RATIO INCREASED [None]
  - HAEMATURIA [None]
  - PYELONEPHRITIS [None]
